FAERS Safety Report 9466762 (Version 2)
Quarter: 2013Q3

REPORT INFORMATION
  Report Type: Report from Study
  Country: RO (occurrence: RO)
  Receive Date: 20130820
  Receipt Date: 20130820
  Transmission Date: 20140515
  Serious: Yes (Death, Hospitalization)
  Sender: FDA-Public Use
  Company Number: PHHY2013RO076605

PATIENT
  Age: 68 Year
  Sex: Male

DRUGS (6)
  1. CARBIDOPA,ENTACAPONE,LEVODOPA [Suspect]
     Indication: PARKINSON^S DISEASE
     Dosage: 150 MG, QID
     Route: 048
     Dates: start: 201212
  2. MADOPAR [Concomitant]
     Dosage: 250 MG, DAILY
  3. NEUPRO [Concomitant]
     Dosage: 8 MG/ZI (AS REPORTED)
     Dates: start: 201207
  4. VIREGYT K [Concomitant]
     Dosage: 2 DF / ZI (AS REPORTED)
  5. RIVOTRIL [Concomitant]
     Dosage: 0.5/ ZI (AS REPORTED)
  6. PRESTARIUM [Concomitant]
     Indication: HYPERTENSION
     Dosage: 5 MG, BID (5 MG 2/ZI)
     Dates: start: 2011

REACTIONS (3)
  - Gastroenteritis [Fatal]
  - Intestinal ischaemia [Unknown]
  - Subileus [Unknown]
